FAERS Safety Report 8991269 (Version 1)
Quarter: 2012Q4

REPORT INFORMATION
  Report Type: Report from Study
  Country: CA (occurrence: CA)
  Receive Date: 20121231
  Receipt Date: 20121231
  Transmission Date: 20130627
  Serious: Yes (Other)
  Sender: FDA-Public Use
  Company Number: CA-ROCHE-1167434

PATIENT
  Sex: Male
  Weight: 65 kg

DRUGS (1)
  1. XOLAIR [Suspect]
     Indication: ASTHMA
     Route: 058
     Dates: start: 20070517

REACTIONS (11)
  - Polyp [Unknown]
  - Sinusitis [Unknown]
  - Pulmonary congestion [Unknown]
  - Dyspnoea [Unknown]
  - Ear discomfort [Unknown]
  - Ear infection [Unknown]
  - Hypoaesthesia [Unknown]
  - Influenza [Unknown]
  - Pyrexia [Unknown]
  - Seasonal allergy [Unknown]
  - Nasopharyngitis [Unknown]
